FAERS Safety Report 18714523 (Version 1)
Quarter: 2021Q1

REPORT INFORMATION
  Report Type: Report from Study
  Country: US (occurrence: US)
  Receive Date: 20210107
  Receipt Date: 20210107
  Transmission Date: 20210419
  Serious: Yes (Other)
  Sender: FDA-Public Use
  Company Number: US-ASTRAZENECA-2021A000523

PATIENT
  Sex: Female

DRUGS (2)
  1. LYNPARZA [Suspect]
     Active Substance: OLAPARIB
     Indication: OVARIAN CANCER
     Route: 048
  2. AVASTIN [Concomitant]
     Active Substance: BEVACIZUMAB

REACTIONS (3)
  - Nausea [Recovering/Resolving]
  - Laboratory test abnormal [Unknown]
  - Fatigue [Recovering/Resolving]
